FAERS Safety Report 5118349-6 (Version None)
Quarter: 2006Q3

REPORT INFORMATION
  Report Type: 
  Country: None (occurrence: None)
  Receive Date: 20060927
  Receipt Date: 20060913
  Transmission Date: 20061208
  Serious: Yes (Hospitalization)
  Sender: FDA-Public Use
  Company Number: 2006_000019

PATIENT
  Age: 61 Year
  Sex: Male

DRUGS (7)
  1. DEPOCYT [Suspect]
     Indication: NERVOUS SYSTEM DISORDER
     Dosage: 50 MG; X1; INTH
     Dates: start: 20060428, end: 20060428
  2. NYSTATIN [Concomitant]
  3. FLUCONAZOLE [Concomitant]
  4. DEXAMETHASONE TAB [Concomitant]
  5. AMIKACIN [Concomitant]
  6. CEFEPIME HYDROCHLORIDE [Concomitant]
  7. CEFTRIAXONE [Concomitant]

REACTIONS (8)
  - ARACHNOIDITIS [None]
  - ASTHENIA [None]
  - DISORIENTATION [None]
  - DISTURBANCE IN ATTENTION [None]
  - HALLUCINATION, VISUAL [None]
  - MENINGISM [None]
  - NERVOUS SYSTEM DISORDER [None]
  - PYREXIA [None]
